FAERS Safety Report 20469767 (Version 1)
Quarter: 2022Q1

REPORT INFORMATION
  Report Type: Spontaneous
  Country: US (occurrence: US)
  Receive Date: 20220214
  Receipt Date: 20220214
  Transmission Date: 20220424
  Serious: No
  Sender: FDA-Public Use
  Company Number: US-BRISTOL-MYERS SQUIBB COMPANY-BMS-2022-018279

PATIENT
  Age: 52 Year
  Sex: Female

DRUGS (1)
  1. SPRYCEL [Suspect]
     Active Substance: DASATINIB
     Indication: Chronic myeloid leukaemia
     Dosage: 100 MILLIGRAM, DAILY
     Route: 048
     Dates: start: 20210619

REACTIONS (7)
  - Pain in extremity [Unknown]
  - Dry skin [Unknown]
  - Physical deconditioning [Unknown]
  - Hyperkeratosis [Unknown]
  - Fungal skin infection [Unknown]
  - Gait disturbance [Unknown]
  - Weight decreased [Unknown]
